FAERS Safety Report 14627843 (Version 2)
Quarter: 2019Q2

REPORT INFORMATION
  Report Type: Spontaneous
  Country: US (occurrence: US)
  Receive Date: 20180312
  Receipt Date: 20190520
  Transmission Date: 20190711
  Serious: Yes (Other)
  Sender: FDA-Public Use
  Company Number: US-BAUSCH-BL-2018-006129

PATIENT
  Age: 46 Year
  Sex: Female

DRUGS (2)
  1. XIFAXAN [Suspect]
     Active Substance: RIFAXIMIN
     Route: 048
     Dates: end: 2019
  2. XIFAXAN [Suspect]
     Active Substance: RIFAXIMIN
     Indication: PRODUCT USED FOR UNKNOWN INDICATION
     Route: 048
     Dates: end: 201802

REACTIONS (12)
  - Hepatic cirrhosis [Unknown]
  - Inability to afford medication [Unknown]
  - Neuropathy peripheral [Unknown]
  - Therapy cessation [Unknown]
  - Cardiac failure congestive [Unknown]
  - Constipation [Unknown]
  - Pleural effusion [Unknown]
  - Diabetes mellitus [Unknown]
  - Breast cancer [Unknown]
  - Gastrointestinal disorder [Unknown]
  - Symptom recurrence [Unknown]
  - Hepatic encephalopathy [Not Recovered/Not Resolved]

NARRATIVE: CASE EVENT DATE: 201802
